FAERS Safety Report 4985782-2 (Version None)
Quarter: 2006Q2

REPORT INFORMATION
  Report Type: 
  Country: None (occurrence: None)
  Receive Date: 20060421
  Receipt Date: 20060410
  Transmission Date: 20061013
  Serious: Yes (Other)
  Sender: FDA-Public Use
  Company Number: 2006050190

PATIENT
  Age: 69 Year
  Sex: Female

DRUGS (1)
  1. XALATAN [Suspect]
     Indication: ILL-DEFINED DISORDER
     Dosage: (DAILY)
     Dates: start: 20060101, end: 20060408

REACTIONS (6)
  - DRY EYE [None]
  - EYE BURNS [None]
  - EYE DISORDER [None]
  - EYE IRRITATION [None]
  - PAIN [None]
  - RETINAL OEDEMA [None]
